FAERS Safety Report 6929378-1 (Version None)
Quarter: 2010Q3

REPORT INFORMATION
  Report Type: 
  Country: None (occurrence: None)
  Receive Date: 20100818
  Receipt Date: 20100811
  Transmission Date: 20110219
  Serious: Yes (Hospitalization)
  Sender: FDA-Public Use
  Company Number: US-BIOGENIDEC-2010BI015414

PATIENT
  Age: 55 Year
  Sex: Female
  Weight: 114 kg

DRUGS (2)
  1. TYSABRI [Suspect]
     Indication: MULTIPLE SCLEROSIS
     Route: 042
     Dates: start: 20071101, end: 20090201
  2. TYSABRI [Suspect]
     Route: 042
     Dates: start: 20100301

REACTIONS (2)
  - CELLULITIS [None]
  - STAPHYLOCOCCAL INFECTION [None]
